FAERS Safety Report 21164758 (Version 1)
Quarter: 2022Q3

REPORT INFORMATION
  Report Type: Spontaneous
  Country: CA (occurrence: CA)
  Receive Date: 20220803
  Receipt Date: 20220803
  Transmission Date: 20221026
  Serious: Yes (Hospitalization, Other)
  Sender: FDA-Public Use
  Company Number: CA-BAXTER-2022BAX016446

PATIENT
  Age: 70 Year
  Sex: Male
  Weight: 79 kg

DRUGS (4)
  1. CYCLOPHOSPHAMIDE [Suspect]
     Active Substance: CYCLOPHOSPHAMIDE
     Indication: Product used for unknown indication
     Dosage: 1 MG/ML, 1 EVERY 2 WEEKS,DOSAGE FORM:POWDER FOR SOLUTION INTRAVENOUS,INTRAVENOUS(NOT OTHERWISE SPECI
     Route: 042
  2. DOXORUBICIN [Suspect]
     Active Substance: DOXORUBICIN
     Indication: Product used for unknown indication
     Dosage: 50 MG/M2, 1 EVERY 2 WEEKS, DOSAGE FORM: SOLUTION INTRAVENOUS, INJECTION BP, INTRAVENOUS(NOT OTHERWIS
     Route: 042
  3. TRUXIMA [Suspect]
     Active Substance: RITUXIMAB-ABBS
     Indication: Product used for unknown indication
     Dosage: 375 MG/ML,1 EVERY 2 WEEKS, DOSAGE FORM:SOLUTION INTRAVENOUS, INTRAVENOUS(NOT OTHERWISE SPECIFIED), S
     Route: 042
  4. VINCRISTINE SULFATE [Suspect]
     Active Substance: VINCRISTINE SULFATE
     Indication: Product used for unknown indication
     Dosage: 750 MG/M2, 1 EVERY 2 WEEKS, DOSAGE FORM: SOLUTION INTRAVENOUS, INTRAVENOUS(NOT OTHERWISE SPECIFIED),
     Route: 042

REACTIONS (3)
  - Fall [Recovered/Resolved]
  - Asthenia [Recovered/Resolved]
  - Febrile neutropenia [Recovered/Resolved]
